FAERS Safety Report 8790335 (Version 3)
Quarter: 2012Q4

REPORT INFORMATION
  Report Type: Report from Study
  Country: JP (occurrence: JP)
  Receive Date: 20120917
  Receipt Date: 20121130
  Transmission Date: 20130627
  Serious: Yes (Death, Other)
  Sender: FDA-Public Use
  Company Number: JP-GENZYME-FLUD-1001564

PATIENT
  Age: 81 None
  Sex: Female

DRUGS (4)
  1. FLUDARA [Suspect]
     Indication: CHRONIC LYMPHOCYTIC LEUKAEMIA
     Dosage: 20 mg/day, UNK, for four days
     Route: 042
     Dates: start: 20100112, end: 20100116
  2. FLUDARA [Suspect]
     Indication: CHRONIC LYMPHOCYTIC LEUKAEMIA
     Dosage: 40 mg, qd
     Route: 048
     Dates: start: 20100417, end: 20100423
  3. METHOTREXATE [Concomitant]
     Indication: RHEUMATOID ARTHRITIS
     Dosage: 6 mg/week, UNK
     Route: 065
     Dates: start: 20090130, end: 20100710
  4. PREDNISOLONE [Concomitant]
     Indication: RHEUMATOID ARTHRITIS
     Dosage: 5 mg, qd
     Route: 065
     Dates: start: 20050509, end: 20100724

REACTIONS (5)
  - Histiocytosis haematophagic [Fatal]
  - Haemoglobin decreased [Fatal]
  - Protein total decreased [Fatal]
  - Pneumonia [Recovered/Resolved]
  - Fall [Unknown]
